FAERS Safety Report 5043972-7 (Version None)
Quarter: 2006Q3

REPORT INFORMATION
  Report Type: 
  Country: None (occurrence: None)
  Receive Date: 20060706
  Receipt Date: 20060624
  Transmission Date: 20061208
  Serious: Yes (Other)
  Sender: FDA-Public Use
  Company Number: 2006UW13660

PATIENT
  Sex: Male

DRUGS (1)
  1. RHINOCORT AQUA [Suspect]
     Route: 055
     Dates: start: 20060622, end: 20060624

REACTIONS (2)
  - VISION BLURRED [None]
  - VISUAL DISTURBANCE [None]
